FAERS Safety Report 13045870 (Version 2)
Quarter: 2016Q4

REPORT INFORMATION
  Report Type: Report from Study
  Country: FR (occurrence: FR)
  Receive Date: 20161220
  Receipt Date: 20161221
  Transmission Date: 20170207
  Serious: Yes (Hospitalization, Other)
  Sender: FDA-Public Use
  Company Number: FR-AMGEN-FRANI2016154541

PATIENT
  Age: 72 Year
  Sex: Female

DRUGS (13)
  1. LYRICA [Concomitant]
     Active Substance: PREGABALIN
     Dosage: 150 MG, ONE IN THE NIGHT
  2. ARANESP [Concomitant]
     Active Substance: DARBEPOETIN ALFA
     Dosage: UNK
  3. MOVICOL [Concomitant]
     Active Substance: POLYETHYLENE GLYCOL 3350\POTASSIUM CHLORIDE\SODIUM BICARBONATE\SODIUM CHLORIDE
     Dosage: UNK, TWO IN THE MORNING
  4. PENTACARINAT [Concomitant]
     Active Substance: PENTAMIDINE ISETHIONATE
     Dosage: UNK
  5. CYMBALTA [Concomitant]
     Active Substance: DULOXETINE HYDROCHLORIDE
     Dosage: 30 MG, ONE IN THE MORNING
  6. AMOXICILLINE [Concomitant]
     Active Substance: AMOXICILLIN
     Dosage: UNK
  7. ZELITREX [Concomitant]
     Active Substance: VALACYCLOVIR HYDROCHLORIDE
     Dosage: 500, BID
  8. CARFILZOMIB [Suspect]
     Active Substance: CARFILZOMIB
     Indication: PLASMA CELL MYELOMA
     Dosage: 20/56 MG/M2, UNK
     Route: 065
     Dates: start: 201602, end: 2016
  9. TOPALGIC LP [Concomitant]
     Active Substance: TRAMADOL
     Dosage: 100 MG, ONE IN THE MORNING
  10. CARFILZOMIB [Suspect]
     Active Substance: CARFILZOMIB
     Dosage: 90 MG, UNK
     Route: 065
     Dates: start: 2016
  11. LOXEN L P [Concomitant]
     Active Substance: NICARDIPINE HYDROCHLORIDE
     Dosage: 50, BID
  12. CEFTRIAXONE. [Concomitant]
     Active Substance: CEFTRIAXONE
     Dosage: UNK
  13. DEXAMETHASONE. [Concomitant]
     Active Substance: DEXAMETHASONE
     Indication: PLASMA CELL MYELOMA
     Dosage: 20 MG, QWK
     Dates: start: 201602

REACTIONS (3)
  - Plasma cell myeloma [Unknown]
  - Pyrexia [Unknown]
  - Listeria sepsis [Unknown]

NARRATIVE: CASE EVENT DATE: 2016
